FAERS Safety Report 18282087 (Version 1)
Quarter: 2020Q3

REPORT INFORMATION
  Report Type: Spontaneous
  Country: UA (occurrence: UA)
  Receive Date: 20200918
  Receipt Date: 20200918
  Transmission Date: 20201103
  Serious: Yes (Other)
  Sender: FDA-Public Use
  Company Number: UA-TEVA-2020-UA-1826868

PATIENT
  Sex: Female

DRUGS (1)
  1. METFORMIN?TEVA [Suspect]
     Active Substance: METFORMIN HYDROCHLORIDE
     Dosage: 1700 MILLIGRAM DAILY;
     Route: 065

REACTIONS (1)
  - Gastric ulcer [Unknown]
